FAERS Safety Report 7797792-0 (Version None)
Quarter: 2011Q4

REPORT INFORMATION
  Report Type: 
  Country: None (occurrence: None)
  Receive Date: 20111005
  Receipt Date: 20110926
  Transmission Date: 20120403
  Serious: Yes (Hospitalization)
  Sender: FDA-Public Use
  Company Number: CA-JNJFOC-20110911683

PATIENT
  Sex: Female
  Weight: 69 kg

DRUGS (2)
  1. REMICADE [Suspect]
     Indication: COLITIS ULCERATIVE
     Route: 042
     Dates: start: 20100505
  2. OTHER THERAPEUTIC MEDICATION [Concomitant]
     Dosage: ^LIMITREX^ NASAL SPRAY (PM)

REACTIONS (2)
  - DIVERTICULITIS [None]
  - APPENDICECTOMY [None]
